FAERS Safety Report 6911512-0 (Version None)
Quarter: 2010Q3

REPORT INFORMATION
  Report Type: 
  Country: None (occurrence: None)
  Receive Date: 20100806
  Receipt Date: 20100729
  Transmission Date: 20110219
  Serious: Yes (Life-Threatening)
  Sender: FDA-Public Use
  Company Number: UG-ABBOTT-10P-165-0657385-00

PATIENT
  Age: 20 Year
  Sex: Female
  Weight: 53.5 kg

DRUGS (6)
  1. ALUVIA TABLETS [Suspect]
     Indication: MALARIA PROPHYLAXIS
     Route: 048
  2. ALUVIA TABLETS [Suspect]
     Indication: HIV INFECTION
  3. AZT [Concomitant]
     Indication: HIV INFECTION
     Dates: end: 20100702
  4. LAMIVUDINE (EPIVIR HBV) [Concomitant]
     Indication: HIV INFECTION
  5. TENOFOVIR DISOPROXIL FUMARATE [Concomitant]
     Indication: HIV INFECTION
     Dates: start: 20100702
  6. EFAVIRENZ [Concomitant]
     Indication: HIV INFECTION

REACTIONS (1)
  - ANAEMIA [None]
